FAERS Safety Report 20652929 (Version 1)
Quarter: 2022Q1

REPORT INFORMATION
  Report Type: Spontaneous
  Country: RU (occurrence: RU)
  Receive Date: 20220330
  Receipt Date: 20220330
  Transmission Date: 20220423
  Serious: Yes (Other)
  Sender: FDA-Public Use
  Company Number: RU-UCBSA-2022018329

PATIENT
  Age: 32 Year
  Sex: Female

DRUGS (2)
  1. XYZAL [Suspect]
     Active Substance: LEVOCETIRIZINE DIHYDROCHLORIDE
     Indication: Urticaria
     Dosage: 1 DOSAGE FORM, ONCE DAILY (QD)
     Route: 048
  2. SUPRASTINE [Concomitant]
     Indication: Product used for unknown indication

REACTIONS (3)
  - General physical health deterioration [Not Recovered/Not Resolved]
  - Dyspnoea [Not Recovered/Not Resolved]
  - Muscle oedema [Not Recovered/Not Resolved]
